FAERS Safety Report 8833647 (Version 1)
Quarter: 2012Q4

REPORT INFORMATION
  Report Type: 
  Country: US (occurrence: US)
  Receive Date: 20121010
  Receipt Date: 20121010
  Transmission Date: 20130627
  Serious: Yes (Life-Threatening, Other)
  Sender: FDA-Public Use
  Company Number: US-MYLANLABS-2012S1016997

PATIENT
  Age: 70 Year
  Sex: Female

DRUGS (3)
  1. PERFOROMIST [Suspect]
     Indication: CHRONIC OBSTRUCTIVE PULMONARY DISEASE
     Route: 055
  2. BUDESONIDE [Suspect]
     Route: 055
  3. BROVANA [Suspect]
     Indication: CHRONIC OBSTRUCTIVE PULMONARY DISEASE

REACTIONS (3)
  - Acute respiratory distress syndrome [Not Recovered/Not Resolved]
  - Bronchospasm paradoxical [Not Recovered/Not Resolved]
  - Dyspnoea [Not Recovered/Not Resolved]
